FAERS Safety Report 24855858 (Version 2)
Quarter: 2025Q1

REPORT INFORMATION
  Report Type: Spontaneous
  Country: GB (occurrence: GB)
  Receive Date: 20250117
  Receipt Date: 20250125
  Transmission Date: 20250409
  Serious: Yes (Death, Life-Threatening, Other)
  Sender: CELLTRION
  Company Number: None

PATIENT

DRUGS (29)
  1. BEVACIZUMAB [Suspect]
     Active Substance: BEVACIZUMAB
     Indication: Palliative care
     Dates: start: 20241004
  2. BEVACIZUMAB [Suspect]
     Active Substance: BEVACIZUMAB
     Dates: start: 20241025
  3. BEVACIZUMAB [Suspect]
     Active Substance: BEVACIZUMAB
     Dates: start: 20241115
  4. BEVACIZUMAB [Suspect]
     Active Substance: BEVACIZUMAB
     Dates: start: 20241206
  5. BEVACIZUMAB [Suspect]
     Active Substance: BEVACIZUMAB
  6. AMLODIPINE [Concomitant]
     Active Substance: AMLODIPINE BESYLATE
  7. ATEZOLIZUMAB [Concomitant]
     Active Substance: ATEZOLIZUMAB
     Indication: Palliative care
     Dates: start: 20241004
  8. ATEZOLIZUMAB [Concomitant]
     Active Substance: ATEZOLIZUMAB
     Dates: start: 20241025
  9. ATEZOLIZUMAB [Concomitant]
     Active Substance: ATEZOLIZUMAB
     Dates: start: 20241115
  10. ATEZOLIZUMAB [Concomitant]
     Active Substance: ATEZOLIZUMAB
     Dates: start: 20241206
  11. ATEZOLIZUMAB [Concomitant]
     Active Substance: ATEZOLIZUMAB
  12. CARBOPLATIN [Concomitant]
     Active Substance: CARBOPLATIN
     Indication: Palliative care
     Dates: start: 20241004
  13. CARBOPLATIN [Concomitant]
     Active Substance: CARBOPLATIN
     Dates: start: 20241025
  14. CARBOPLATIN [Concomitant]
     Active Substance: CARBOPLATIN
     Dates: start: 20241115
  15. CARBOPLATIN [Concomitant]
     Active Substance: CARBOPLATIN
     Dates: start: 20241206
  16. CARBOPLATIN [Concomitant]
     Active Substance: CARBOPLATIN
  17. CETIRIZINE [Concomitant]
     Active Substance: CETIRIZINE HYDROCHLORIDE
  18. CHLORPHENIRAMINE MALEATE [Concomitant]
     Active Substance: CHLORPHENIRAMINE MALEATE
     Route: 042
  19. COCODAMOL [Concomitant]
     Active Substance: ACETAMINOPHEN\CODEINE PHOSPHATE
  20. DEXAMETHASONE [Concomitant]
     Active Substance: DEXAMETHASONE
     Route: 048
  21. DIPROBASE [CETOMACROGOL;CETOSTEARYL ALCOHOL;PARAFFIN, LIQUID;WHITE SOF [Concomitant]
  22. GRANISETRON [Concomitant]
     Active Substance: GRANISETRON
     Route: 042
  23. METOCLOPRAMIDE [Concomitant]
     Active Substance: METOCLOPRAMIDE
     Route: 048
  24. ONDANSETRON [Concomitant]
     Active Substance: ONDANSETRON
     Route: 048
  25. PACLITAXEL [Concomitant]
     Active Substance: PACLITAXEL
     Indication: Palliative care
     Dates: start: 20241004
  26. PACLITAXEL [Concomitant]
     Active Substance: PACLITAXEL
     Dates: start: 20241025
  27. PACLITAXEL [Concomitant]
     Active Substance: PACLITAXEL
     Dates: start: 20241115
  28. PACLITAXEL [Concomitant]
     Active Substance: PACLITAXEL
     Dates: start: 20241206
  29. PACLITAXEL [Concomitant]
     Active Substance: PACLITAXEL

REACTIONS (15)
  - Small cell lung cancer metastatic [Fatal]
  - Intestinal perforation [Fatal]
  - Cardiac output decreased [Unknown]
  - Agonal respiration [Unknown]
  - Blood pressure decreased [Unknown]
  - Metabolic acidosis [Unknown]
  - Tachycardia [Unknown]
  - Unresponsive to stimuli [Unknown]
  - Haemoptysis [Unknown]
  - Hypertension [Unknown]
  - Neutropenia [Unknown]
  - Hypophagia [Unknown]
  - Abdominal pain [Unknown]
  - Constipation [Unknown]
  - Somnolence [Unknown]

NARRATIVE: CASE EVENT DATE: 20241215
